FAERS Safety Report 19466339 (Version 1)
Quarter: 2021Q2

REPORT INFORMATION
  Report Type: Report from Study
  Country: US (occurrence: US)
  Receive Date: 20210627
  Receipt Date: 20210627
  Transmission Date: 20210717
  Serious: Yes (Other)
  Sender: FDA-Public Use
  Company Number: US-BIOGEN-2021BI01022959

PATIENT
  Age: 37 Year
  Sex: Male
  Weight: 86.2 kg

DRUGS (1)
  1. SPINRAZA [Suspect]
     Active Substance: NUSINERSEN
     Indication: SPINAL MUSCULAR ATROPHY
     Dosage: ONCE FOR 1 DOSE
     Route: 037

REACTIONS (2)
  - Weight decreased [Unknown]
  - Overweight [Unknown]

NARRATIVE: CASE EVENT DATE: 20201030
